FAERS Safety Report 8602905-4 (Version None)
Quarter: 2012Q3

REPORT INFORMATION
  Report Type: 
  Country: None (occurrence: None)
  Receive Date: 20120817
  Receipt Date: 20120810
  Transmission Date: 20120928
  Serious: Yes (Hospitalization)
  Sender: FDA-Public Use
  Company Number: KR-VIIV HEALTHCARE LIMITED-B0819339A

PATIENT
  Age: 53 Year
  Sex: Male

DRUGS (6)
  1. ABACAVIR [Suspect]
     Indication: HIV INFECTION
     Route: 065
  2. RITONAVIR [Concomitant]
     Indication: HIV INFECTION
     Route: 065
  3. LOPINAVIR [Concomitant]
     Indication: HIV INFECTION
     Route: 065
  4. LAMIVUDINE [Concomitant]
     Indication: HIV INFECTION
     Route: 065
  5. EFAVIRENZ [Concomitant]
     Indication: HIV INFECTION
     Route: 065
  6. ATAZANAVIR [Concomitant]
     Indication: HIV INFECTION
     Route: 065

REACTIONS (8)
  - PYREXIA [None]
  - ASTHENIA [None]
  - DYSPNOEA [None]
  - GENERALISED OEDEMA [None]
  - RASH ERYTHEMATOUS [None]
  - DIARRHOEA [None]
  - HYPERSENSITIVITY [None]
  - CHILLS [None]
